FAERS Safety Report 11424623 (Version 2)
Quarter: 2015Q4

REPORT INFORMATION
  Report Type: Spontaneous
  Country: US (occurrence: US)
  Receive Date: 20150827
  Receipt Date: 20151001
  Transmission Date: 20160304
  Serious: Yes (Other)
  Sender: FDA-Public Use
  Company Number: US-PFIZER INC-2015275700

PATIENT
  Age: 68 Year
  Sex: Female
  Weight: 73 kg

DRUGS (7)
  1. ASPIRIN. [Concomitant]
     Active Substance: ASPIRIN
     Dosage: 81 MG, DAILY
     Route: 048
  2. METOPROLOL TARTRATE. [Concomitant]
     Active Substance: METOPROLOL TARTRATE
     Dosage: 1/2 PILL IN THE MORNING AND 1/2 A PILL AT NIGHT
     Route: 048
  3. L THYROXINE [Concomitant]
     Active Substance: LEVOTHYROXINE SODIUM
     Dosage: 88 ?G, 1X/DAY
     Route: 048
  4. FIBERCON [Suspect]
     Active Substance: CALCIUM POLYCARBOPHIL
     Indication: FAECAL INCONTINENCE
     Dosage: 1 DF, UNK
     Route: 048
     Dates: start: 20150814, end: 20150814
  5. FISH OIL [Concomitant]
     Active Substance: FISH OIL
     Dosage: 2800 MG, DAILY
     Route: 048
  6. MULTIVITAMIN /07504101/ [Concomitant]
     Active Substance: VITAMINS
     Dosage: 1 DF, DAILY
     Route: 048
  7. CLOPIDOGREL [Concomitant]
     Active Substance: CLOPIDOGREL BISULFATE
     Indication: CARDIAC DISORDER
     Dosage: 75 MG, 1X/DAY
     Route: 048

REACTIONS (9)
  - Oropharyngeal pain [Recovered/Resolved]
  - Condition aggravated [Recovered/Resolved]
  - Intentional product use issue [Unknown]
  - Anxiety [Recovering/Resolving]
  - Pharyngeal oedema [Recovered/Resolved]
  - Feeling abnormal [Not Recovered/Not Resolved]
  - Emotional disorder [Recovering/Resolving]
  - Local swelling [Recovered/Resolved]
  - Discomfort [Recovered/Resolved]

NARRATIVE: CASE EVENT DATE: 201508
